FAERS Safety Report 6275316-7 (Version None)
Quarter: 2009Q3

REPORT INFORMATION
  Report Type: 
  Country: None (occurrence: None)
  Receive Date: 20090721
  Receipt Date: 20090710
  Transmission Date: 20100115
  Serious: Yes (Hospitalization)
  Sender: FDA-Public Use
  Company Number: B0573947A

PATIENT
  Sex: Female

DRUGS (3)
  1. MELPHALAN [Suspect]
     Indication: MULTIPLE MYELOMA
     Dosage: 8MG PER DAY
     Route: 065
     Dates: start: 20080916, end: 20090404
  2. PREDNISONE TAB [Suspect]
     Indication: MULTIPLE MYELOMA
     Dosage: 170MG PER DAY
     Route: 065
     Dates: start: 20080916, end: 20090404
  3. BLINDED TRIAL MEDICATION [Suspect]
     Indication: MULTIPLE MYELOMA
     Dosage: 7.5MG PER DAY
     Route: 048
     Dates: start: 20080916, end: 20090418

REACTIONS (4)
  - BLOOD GLUCOSE INCREASED [None]
  - BRONCHITIS [None]
  - COUGH [None]
  - PYREXIA [None]
